FAERS Safety Report 8276146-7 (Version None)
Quarter: 2012Q2

REPORT INFORMATION
  Report Type: 
  Country: None (occurrence: None)
  Receive Date: 20120412
  Receipt Date: 20120323
  Transmission Date: 20120825
  Serious: No
  Sender: FDA-Public Use
  Company Number: US-ROXANE LABORATORIES, INC.-2012-RO-00896RO

PATIENT
  Sex: Female

DRUGS (3)
  1. SINGULAIR [Concomitant]
     Indication: ASTHMA
     Route: 055
  2. FLUTICASONE FUROATE [Suspect]
     Indication: RHINITIS ALLERGIC
     Route: 045
     Dates: start: 20120322, end: 20120322
  3. AFRIN [Concomitant]
     Indication: RHINITIS ALLERGIC
     Route: 045

REACTIONS (1)
  - ASTHMA [None]
